FAERS Safety Report 6261487-5 (Version None)
Quarter: 2009Q3

REPORT INFORMATION
  Report Type: 
  Country: None (occurrence: None)
  Receive Date: 20090709
  Receipt Date: 20090702
  Transmission Date: 20100115
  Serious: Yes (Other)
  Sender: FDA-Public Use
  Company Number: US-PFIZER INC-2008062736

PATIENT
  Sex: Female
  Weight: 66 kg

DRUGS (4)
  1. PROVERA [Suspect]
     Indication: HORMONE REPLACEMENT THERAPY
     Dosage: 5 MG, UNK
     Route: 048
     Dates: start: 19921101, end: 19940601
  2. PREMARIN [Suspect]
     Indication: HORMONE REPLACEMENT THERAPY
     Dosage: 0.625 MG, UNK
     Dates: start: 19921201, end: 19940501
  3. CYCRIN [Suspect]
     Indication: HORMONE REPLACEMENT THERAPY
     Dosage: 2.5 MG, UNK
     Dates: start: 19950501, end: 19970901
  4. ESTRACE [Suspect]
     Indication: HORMONE REPLACEMENT THERAPY
     Dosage: 2 MG, UNK
     Dates: start: 19950701, end: 19970601

REACTIONS (1)
  - BREAST CANCER FEMALE [None]
